FAERS Safety Report 20346714 (Version 11)
Quarter: 2022Q2

REPORT INFORMATION
  Report Type: Report from Study
  Country: ES (occurrence: ES)
  Receive Date: 20220118
  Receipt Date: 20220615
  Transmission Date: 20220720
  Serious: Yes (Hospitalization, Other)
  Sender: FDA-Public Use
  Company Number: ES-ROCHE-2987002

PATIENT
  Age: 77 Year
  Sex: Female
  Weight: 61 kg

DRUGS (24)
  1. PACLITAXEL [Suspect]
     Active Substance: PACLITAXEL
     Indication: Breast cancer
     Dosage: 140 MILLIGRAM
     Route: 042
     Dates: start: 20211111, end: 20211209
  2. PACLITAXEL [Suspect]
     Active Substance: PACLITAXEL
     Dosage: 90 MILLIGRAM/SQ. METER (DOSE: 140, LAST DOSE BEFORE SAE 09/12/2021AT 90 MG/M2)
     Route: 042
     Dates: start: 20211111
  3. TRASTUZUMAB [Suspect]
     Active Substance: TRASTUZUMAB
     Indication: Breast cancer
     Dosage: LOADING DOSE OF 8 MG/KG I.V. THEN 6 MG/KG I.V.LAST DOSE BEFORE SAE 02/12/2021, DOSE: 366
     Route: 041
     Dates: start: 20211111
  4. TRASTUZUMAB [Suspect]
     Active Substance: TRASTUZUMAB
     Dosage: 366 MILLIGRAM
     Route: 041
     Dates: start: 20211111, end: 20211202
  5. PERTUZUMAB [Suspect]
     Active Substance: PERTUZUMAB
     Indication: Breast cancer
     Dosage: 840 MILLIGRAM, Q3W (DOSE: 420, LAST DOSE BEFORE SAE 02/12/2021LOADING DOSE OF 840 MG IV)
     Route: 042
     Dates: start: 20211111
  6. PERTUZUMAB [Suspect]
     Active Substance: PERTUZUMAB
     Dosage: 420 MILLIGRAM
     Route: 042
     Dates: start: 20211111, end: 20211202
  7. ATEZOLIZUMAB [Suspect]
     Active Substance: ATEZOLIZUMAB
     Indication: Breast cancer
     Dosage: 1200 MILLIGRAM, Q3W (DOSE: 1200LAST DOSE BEFORE SAE 02/12/2021)
     Route: 041
     Dates: start: 20211111
  8. PHESGO [Suspect]
     Active Substance: HYALURONIDASE-ZZXF\PERTUZUMAB\TRASTUZUMAB
     Indication: Breast cancer
     Dosage: START DATE: 19-JAN-2022, (600 MILLIGRAM (LAST DOSE BEFORE SAE:02/03/2022)
     Route: 058
  9. CARBOPLATIN [Suspect]
     Active Substance: CARBOPLATIN
     Indication: Breast cancer
     Dosage: 185 MILLIGRAM (LAST DOSE BEFORE SAE 09/12/2021AT AUC 2 I.V. ON DAY 1,DAY 8)
     Route: 042
     Dates: start: 20211111
  10. OMEPRAZOLE [Concomitant]
     Active Substance: OMEPRAZOLE
     Dosage: 40 MILLIGRAM, START 16-DEC-2021
     Route: 042
  11. OMEPRAZOLE [Concomitant]
     Active Substance: OMEPRAZOLE
     Dosage: UNK
     Dates: start: 20220509, end: 20220526
  12. METHYLPREDNISOLONE [Concomitant]
     Active Substance: METHYLPREDNISOLONE
     Dosage: 60 MILLIGRAM, START 17-DEC-2021
     Route: 042
  13. METHYLPREDNISOLONE [Concomitant]
     Active Substance: METHYLPREDNISOLONE
     Dosage: 40 MILLIGRAM, START 21-DEC-2021
     Route: 042
     Dates: end: 20211221
  14. METHYLPREDNISOLONE [Concomitant]
     Active Substance: METHYLPREDNISOLONE
     Dosage: 80 MILLIGRAM, START 22-DEC-2021
     Route: 042
     Dates: end: 20211222
  15. METHYLPREDNISOLONE [Concomitant]
     Active Substance: METHYLPREDNISOLONE
     Dosage: 60 MILLIGRAM (START DATE: 26-JAN-2022)
     Route: 042
     Dates: end: 20220207
  16. ENOXAPARIN SODIUM [Concomitant]
     Active Substance: ENOXAPARIN SODIUM
     Dosage: 40 MILLIGRAM, QD, START 17-DEC-2021
     Route: 058
  17. GANCICLOVIR [Concomitant]
     Active Substance: GANCICLOVIR
     Dosage: 600 MILLIGRAM (START DATE: 26-JAN-2022)
     Dates: end: 20220204
  18. MEROPENEM [Concomitant]
     Active Substance: MEROPENEM
     Dosage: 3 GRAM (START DATE: 26-JAN-2022)
     Dates: end: 20220131
  19. DEFLAZACORT [Concomitant]
     Active Substance: DEFLAZACORT
     Dosage: UNK (START DATE:08-FEB-2022)
     Dates: end: 20220219
  20. LOPERAMIDE [Concomitant]
     Active Substance: LOPERAMIDE
     Dosage: 16 MILLIGRAM
     Route: 048
     Dates: start: 20211211, end: 20211214
  21. ACETAMINOPHEN [Concomitant]
     Active Substance: ACETAMINOPHEN
     Dosage: UNK
  22. PRIMPERAN [Concomitant]
     Active Substance: METOCLOPRAMIDE HYDROCHLORIDE
     Dosage: UNK
  23. LORAZEPAM [Concomitant]
     Active Substance: LORAZEPAM
     Dosage: UNK
     Dates: start: 20220509, end: 20220526
  24. ENOXAPARIN SODIUM [Concomitant]
     Active Substance: ENOXAPARIN SODIUM
     Dosage: UNK
     Dates: start: 20220509, end: 20220510

REACTIONS (3)
  - Diarrhoea [Recovered/Resolved]
  - Rectal haemorrhage [Recovered/Resolved]
  - Colitis [Recovered/Resolved]

NARRATIVE: CASE EVENT DATE: 20211214
